FAERS Safety Report 19077390 (Version 1)
Quarter: 2021Q1

REPORT INFORMATION
  Report Type: Spontaneous
  Country: US (occurrence: US)
  Receive Date: 20210331
  Receipt Date: 20210331
  Transmission Date: 20210420
  Serious: No
  Sender: FDA-Public Use
  Company Number: None

PATIENT
  Age: 62 Year
  Sex: Female
  Weight: 78.75 kg

DRUGS (14)
  1. ONDANSETRON HCL [Concomitant]
     Active Substance: ONDANSETRON HYDROCHLORIDE
  2. VITAMIN D3 [Concomitant]
     Active Substance: CHOLECALCIFEROL
  3. CALCIUM 5ML 1,250UNIT [Concomitant]
  4. PANTOPRAZOLE SODIUM. [Concomitant]
     Active Substance: PANTOPRAZOLE SODIUM
  5. SILVER SULFADIAZINE. [Concomitant]
     Active Substance: SILVER SULFADIAZINE
  6. STOOL SOFTEN SUPPOSITORY [Concomitant]
  7. TRIAMCINOLONE ACETONIDE. [Concomitant]
     Active Substance: TRIAMCINOLONE ACETONIDE
  8. IBRANCE [Suspect]
     Active Substance: PALBOCICLIB
     Indication: BREAST CANCER
     Route: 048
     Dates: start: 20201215, end: 20210331
  9. IBUPROFEN. [Concomitant]
     Active Substance: IBUPROFEN
  10. LETROZOLE. [Concomitant]
     Active Substance: LETROZOLE
  11. POLYETHYLENE GLYCOL 1000 [Concomitant]
     Active Substance: POLYETHYLENE GLYCOL 1000
  12. GABAPENTIN. [Concomitant]
     Active Substance: GABAPENTIN
  13. SUCRALFATE. [Concomitant]
     Active Substance: SUCRALFATE
  14. OMEPRAZOLE. [Concomitant]
     Active Substance: OMEPRAZOLE

REACTIONS (1)
  - White blood cell count decreased [None]

NARRATIVE: CASE EVENT DATE: 20210331
